FAERS Safety Report 10152350 (Version 1)
Quarter: 2014Q2

REPORT INFORMATION
  Report Type: Spontaneous
  Country: CA (occurrence: CA)
  Receive Date: 20140505
  Receipt Date: 20140505
  Transmission Date: 20141212
  Serious: Yes (Other)
  Sender: FDA-Public Use
  Company Number: CA-BAXTER-2014BAX021185

PATIENT
  Age: 11 Year
  Sex: Male

DRUGS (7)
  1. GAMMAGARD LIQUID -IMMUNE GLOBULIN INTRAVENOUS (HUMAN), [IGIV] 10% [Suspect]
     Indication: NARCOLEPSY
     Route: 042
  2. GAMMAGARD LIQUID -IMMUNE GLOBULIN INTRAVENOUS (HUMAN), [IGIV] 10% [Suspect]
     Indication: CATAPLEXY
  3. GAMMAGARD LIQUID -IMMUNE GLOBULIN INTRAVENOUS (HUMAN), [IGIV] 10% [Suspect]
     Indication: OFF LABEL USE
  4. METHYLPHENIDATE [Suspect]
     Indication: NARCOLEPSY
     Route: 065
  5. METHYLPHENIDATE [Suspect]
     Indication: CATAPLEXY
  6. SODIUM OXIBATE [Suspect]
     Indication: NARCOLEPSY
     Route: 065
  7. SODIUM OXIBATE [Suspect]
     Indication: CATAPLEXY

REACTIONS (2)
  - No therapeutic response [Not Recovered/Not Resolved]
  - Off label use [None]
